FAERS Safety Report 9901198 (Version 2)
Quarter: 2014Q1

REPORT INFORMATION
  Report Type: Spontaneous
  Country: PL (occurrence: PL)
  Receive Date: 20140217
  Receipt Date: 20140220
  Transmission Date: 20141002
  Serious: Yes (Other)
  Sender: FDA-Public Use
  Company Number: PL-ASTELLAS-2014US001538

PATIENT
  Sex: Female

DRUGS (1)
  1. TARCEVA [Suspect]
     Indication: NON-SMALL CELL LUNG CANCER
     Dosage: 150, UNKNOWN/D
     Route: 065
     Dates: start: 201311

REACTIONS (8)
  - Amnesia [Unknown]
  - Confusional state [Unknown]
  - Amnesia [Unknown]
  - Dysarthria [Unknown]
  - Disorientation [Unknown]
  - Skin disorder [Unknown]
  - Decreased appetite [Unknown]
  - Asthenia [Unknown]
